FAERS Safety Report 7600454-3 (Version None)
Quarter: 2011Q3

REPORT INFORMATION
  Report Type: 
  Country: None (occurrence: None)
  Receive Date: 20110706
  Receipt Date: 20110706
  Transmission Date: 20111222
  Serious: Yes (Hospitalization)
  Sender: FDA-Public Use
  Company Number: None

PATIENT
  Sex: Female
  Weight: 88.4514 kg

DRUGS (2)
  1. CYMBALTA [Suspect]
     Indication: PAIN IN EXTREMITY
     Dosage: 30MG 1 PO
     Route: 048
     Dates: start: 20110630, end: 20110630
  2. CYMBALTA [Suspect]
     Indication: NEUROPATHY PERIPHERAL
     Dosage: 30MG 1 PO
     Route: 048
     Dates: start: 20110630, end: 20110630

REACTIONS (8)
  - MALAISE [None]
  - FEAR [None]
  - DIARRHOEA [None]
  - FEELING ABNORMAL [None]
  - HYPERHIDROSIS [None]
  - FEELING HOT [None]
  - LOSS OF CONSCIOUSNESS [None]
  - VOMITING [None]
